FAERS Safety Report 4351485-0 (Version None)
Quarter: 2004Q2

REPORT INFORMATION
  Report Type: 
  Country: None (occurrence: None)
  Receive Date: 20040428
  Receipt Date: 20040414
  Transmission Date: 20050107
  Serious: Yes (Hospitalization, Other)
  Sender: FDA-Public Use
  Company Number: USA040363582

PATIENT
  Sex: Female

DRUGS (7)
  1. EVISTA [Suspect]
     Indication: MAMMOGRAM ABNORMAL
     Dosage: 60 MG/1 DAY
  2. EVISTA [Suspect]
     Indication: OSTEOPOROSIS
     Dosage: 60 MG/1 DAY
  3. CALCIUM [Concomitant]
  4. ACTONEL [Concomitant]
  5. LIPITOR [Concomitant]
  6. ASPIRIN [Concomitant]
  7. MULTIVITAMIN [Concomitant]

REACTIONS (2)
  - OVARIAN EPITHELIAL CANCER [None]
  - PELVIC MASS [None]
